FAERS Safety Report 14141044 (Version 1)
Quarter: 2017Q4

REPORT INFORMATION
  Report Type: Spontaneous
  Country: US (occurrence: US)
  Receive Date: 20171027
  Receipt Date: 20171027
  Transmission Date: 20180321
  Serious: Yes (Life-Threatening, Hospitalization)
  Sender: FDA-Public Use
  Company Number: None

PATIENT
  Sex: Male
  Weight: 78.75 kg

DRUGS (5)
  1. DAPSONE. [Suspect]
     Active Substance: DAPSONE
     Indication: PROPHYLAXIS
     Route: 048
     Dates: start: 20050416, end: 20070518
  2. DAPSONE. [Suspect]
     Active Substance: DAPSONE
     Indication: PNEUMONIA
     Route: 048
     Dates: start: 20050416, end: 20070518
  3. GENVOYA [Concomitant]
     Active Substance: COBICISTAT\ELVITEGRAVIR\EMTRICITABINE\TENOFOVIR ALAFENAMIDE FUMARATE
  4. TAB-A-VITE [Concomitant]
  5. CALCIUM [Concomitant]
     Active Substance: CALCIUM

REACTIONS (9)
  - Anaemia [None]
  - Fatigue [None]
  - Asthenia [None]
  - Apparent death [None]
  - Dysuria [None]
  - Peripheral swelling [None]
  - Fear [None]
  - Pyrexia [None]
  - Renal failure [None]

NARRATIVE: CASE EVENT DATE: 20050430
